FAERS Safety Report 12476930 (Version 1)
Quarter: 2016Q2

REPORT INFORMATION
  Report Type: Spontaneous
  Country: IR (occurrence: IR)
  Receive Date: 20160617
  Receipt Date: 20160617
  Transmission Date: 20160815
  Serious: Yes (Hospitalization)
  Sender: FDA-Public Use
  Company Number: IR-NORTHSTAR HEALTHCARE HOLDINGS-IR-2016NSR001410

PATIENT
  Age: 23 Year
  Sex: Male

DRUGS (2)
  1. TRAMADOL HYDROCHLORIDE. [Suspect]
     Active Substance: TRAMADOL HYDROCHLORIDE
     Indication: PROPHYLAXIS
  2. TRAMADOL HYDROCHLORIDE. [Suspect]
     Active Substance: TRAMADOL HYDROCHLORIDE
     Indication: PREMATURE EJACULATION
     Dosage: 200 MG, UNK
     Route: 048

REACTIONS (15)
  - Rhabdomyolysis [Recovered/Resolved]
  - Myalgia [Recovered/Resolved]
  - Serotonin syndrome [Unknown]
  - Abdominal pain [Unknown]
  - Renal impairment [Recovered/Resolved]
  - Urine output decreased [Recovered/Resolved]
  - Asthenia [Recovered/Resolved]
  - Restlessness [Unknown]
  - Hyperreflexia [Unknown]
  - Hepatic enzyme increased [Unknown]
  - Myoclonus [Unknown]
  - Back pain [Recovered/Resolved]
  - Irritability [Unknown]
  - Tachycardia [Unknown]
  - Tremor [Unknown]

NARRATIVE: CASE EVENT DATE: 20150725
